FAERS Safety Report 7512224-5 (Version None)
Quarter: 2011Q2

REPORT INFORMATION
  Report Type: 
  Country: None (occurrence: None)
  Receive Date: 20110531
  Receipt Date: 20110527
  Transmission Date: 20111010
  Serious: Yes (Life-Threatening)
  Sender: FDA-Public Use
  Company Number: FR-MILLENNIUM PHARMACEUTICALS, INC.-2011-02259

PATIENT

DRUGS (1)
  1. VELCADE [Suspect]
     Dosage: UNK
     Route: 042
     Dates: start: 20101207, end: 20110317

REACTIONS (1)
  - ILEUS PARALYTIC [None]
